FAERS Safety Report 15327777 (Version 1)
Quarter: 2018Q3

REPORT INFORMATION
  Report Type: Spontaneous
  Country: US (occurrence: US)
  Receive Date: 20180828
  Receipt Date: 20180828
  Transmission Date: 20181010
  Serious: No
  Sender: FDA-Public Use
  Company Number: US-ROCHE-2005311

PATIENT
  Age: 62 Year
  Sex: Male
  Weight: 73.55 kg

DRUGS (1)
  1. PEGASYS [Suspect]
     Active Substance: PEGINTERFERON ALFA-2A
     Indication: POLYCYTHAEMIA VERA
     Dosage: ONGOING: NO
     Route: 065
     Dates: end: 2017

REACTIONS (5)
  - Surfactant protein increased [Not Recovered/Not Resolved]
  - Pain [Not Recovered/Not Resolved]
  - Intentional product use issue [Unknown]
  - Off label use [Unknown]
  - Blood immunoglobulin M increased [Not Recovered/Not Resolved]

NARRATIVE: CASE EVENT DATE: 201610
